FAERS Safety Report 24787327 (Version 1)
Quarter: 2024Q4

REPORT INFORMATION
  Report Type: Report from Study
  Country: US (occurrence: US)
  Receive Date: 20241230
  Receipt Date: 20241230
  Transmission Date: 20250115
  Serious: No
  Sender: ACADIA PHARMACEUTICALS
  Company Number: US-ACADIA PHARMACEUTICALS INC.-ACA-2024-PIM-008797

PATIENT
  Sex: Male

DRUGS (15)
  1. NUPLAZID [Suspect]
     Active Substance: PIMAVANSERIN TARTRATE
     Indication: Psychotic disorder
     Dosage: 34 MILLIGRAM, QD
     Route: 048
     Dates: start: 202409
  2. NUPLAZID [Suspect]
     Active Substance: PIMAVANSERIN TARTRATE
     Indication: Delusion
  3. DONEPEZIL [Concomitant]
     Active Substance: DONEPEZIL
  4. VITAMIN D3 [Concomitant]
     Active Substance: CHOLECALCIFEROL
  5. OCUVITE + LUTEIN [Concomitant]
  6. VITAMINS NOS [Concomitant]
     Active Substance: VITAMINS
  7. ELIQUIS [Concomitant]
     Active Substance: APIXABAN
  8. ALDACTONE [Concomitant]
     Active Substance: SPIRONOLACTONE
  9. FUROSEMIDE [Concomitant]
     Active Substance: FUROSEMIDE
  10. FINASTERIDE [Concomitant]
     Active Substance: FINASTERIDE
  11. ENTACAPONE [Concomitant]
     Active Substance: ENTACAPONE
  12. LINZESS [Concomitant]
     Active Substance: LINACLOTIDE
  13. JARDIANCE [Concomitant]
     Active Substance: EMPAGLIFLOZIN
  14. RANOLAZINE [Concomitant]
     Active Substance: RANOLAZINE
  15. RYTARY [Concomitant]
     Active Substance: CARBIDOPA\LEVODOPA

REACTIONS (1)
  - Cardiac disorder [Recovered/Resolved]
